FAERS Safety Report 16278864 (Version 2)
Quarter: 2019Q2

REPORT INFORMATION
  Report Type: Spontaneous
  Country: US (occurrence: US)
  Receive Date: 20190506
  Receipt Date: 20190514
  Transmission Date: 20190711
  Serious: Yes (Hospitalization, Other)
  Sender: FDA-Public Use
  Company Number: US-CELGENEUS-USA-20190411294

PATIENT
  Sex: Female

DRUGS (2)
  1. THALOMID [Suspect]
     Active Substance: THALIDOMIDE
     Indication: PLASMA CELL MYELOMA
     Dosage: 100 MILLIGRAM
     Route: 048
     Dates: start: 20180126
  2. THALOMID [Suspect]
     Active Substance: THALIDOMIDE
     Indication: DYSKINESIA
     Dosage: 100 MILLIGRAM
     Route: 048
     Dates: start: 201404

REACTIONS (1)
  - Pulmonary artery thrombosis [Unknown]
